FAERS Safety Report 14101457 (Version 3)
Quarter: 2017Q4

REPORT INFORMATION
  Report Type: Spontaneous
  Country: US (occurrence: US)
  Receive Date: 20171018
  Receipt Date: 20171212
  Transmission Date: 20180321
  Serious: No
  Sender: FDA-Public Use
  Company Number: US-PFIZER INC-2017445525

PATIENT
  Age: 72 Year
  Sex: Female
  Weight: 75.75 kg

DRUGS (9)
  1. LISINOPRIL/HCTZ [Concomitant]
     Active Substance: HYDROCHLOROTHIAZIDE\LISINOPRIL
     Indication: BLOOD PRESSURE FLUCTUATION
     Dosage: 1/2 DF, ONCE A DAY
     Dates: start: 2005
  2. LYRICA [Suspect]
     Active Substance: PREGABALIN
     Indication: NEUROPATHY PERIPHERAL
     Dosage: 75 MG, TWICE A DAY
     Dates: start: 201704, end: 201710
  3. TRAMADOL. [Concomitant]
     Active Substance: TRAMADOL
     Indication: PAIN
  4. LYRICA [Suspect]
     Active Substance: PREGABALIN
     Indication: NERVE INJURY
     Dosage: 75 MG, ONCE A DAY IN THE MORNING
     Dates: start: 201710, end: 2017
  5. TRAMADOL. [Concomitant]
     Active Substance: TRAMADOL
     Indication: PAIN
     Dosage: 50 MG, AS NEEDED
  6. TRAZODONE [Concomitant]
     Active Substance: TRAZODONE HYDROCHLORIDE
     Indication: SLEEP DISORDER
     Dosage: 50 MG, DAILY (AT NIGHT)
     Dates: start: 2005
  7. LYRICA [Suspect]
     Active Substance: PREGABALIN
     Dosage: 75 MG, ONCE A DAY AT BEDTIME
     Dates: start: 2017, end: 2017
  8. TRAMADOL EXTENDED RELEASE [Concomitant]
     Indication: PAIN
     Dosage: 100 MG, ONCE DAILY
     Dates: start: 2005
  9. TEMAZEPAM. [Concomitant]
     Active Substance: TEMAZEPAM
     Indication: SLEEP DISORDER
     Dosage: 30 MG, DAILY (AT NIGHT)
     Dates: start: 2005

REACTIONS (17)
  - Influenza like illness [Recovered/Resolved]
  - Ocular hyperaemia [Unknown]
  - Peripheral swelling [Not Recovered/Not Resolved]
  - Withdrawal syndrome [Recovered/Resolved]
  - Intentional product use issue [Recovered/Resolved]
  - Weight increased [Not Recovered/Not Resolved]
  - Constipation [Recovered/Resolved]
  - Pain in extremity [Not Recovered/Not Resolved]
  - Malaise [Unknown]
  - Joint swelling [Unknown]
  - Fatigue [Unknown]
  - Dizziness [Unknown]
  - Hangover [Recovered/Resolved]
  - Middle insomnia [Not Recovered/Not Resolved]
  - Vision blurred [Unknown]
  - Mobility decreased [Not Recovered/Not Resolved]
  - Abdominal distension [Unknown]

NARRATIVE: CASE EVENT DATE: 2017
